FAERS Safety Report 10228364 (Version 1)
Quarter: 2014Q2

REPORT INFORMATION
  Report Type: Spontaneous
  Country: BR (occurrence: BR)
  Receive Date: 20140610
  Receipt Date: 20140610
  Transmission Date: 20141212
  Serious: Yes (Hospitalization, Other)
  Sender: FDA-Public Use
  Company Number: BR-VERTEX PHARMACEUTICALS INC-2014-002663

PATIENT
  Age: 52 Year
  Sex: Female
  Weight: 60.8 kg

DRUGS (5)
  1. INCIVO [Suspect]
     Indication: HEPATITIS C
     Dosage: 750 MG, TID
     Route: 048
     Dates: start: 20140316, end: 20140523
  2. RIBAVIRIN [Suspect]
     Indication: HEPATITIS C
     Dosage: 1 G, QD
     Route: 065
     Dates: start: 20140316
  3. RIBAVIRIN [Suspect]
     Dosage: 750 MG, QD
     Route: 065
  4. RIBAVIRIN [Suspect]
     Dosage: UNK
     Route: 065
     Dates: start: 20140525
  5. PEGINTERFERON ALFA [Concomitant]
     Indication: HEPATITIS C
     Dosage: 180 ?G, QW
     Route: 065
     Dates: start: 20140316

REACTIONS (12)
  - Leukopenia [Recovering/Resolving]
  - Renal impairment [Unknown]
  - Neutropenia [Recovering/Resolving]
  - Anaemia [Recovering/Resolving]
  - Platelet count decreased [Unknown]
  - Tearfulness [Unknown]
  - Asthenia [Unknown]
  - Vomiting [Recovering/Resolving]
  - Nausea [Unknown]
  - Rash [Unknown]
  - Anorectal discomfort [Unknown]
  - Diarrhoea [Unknown]
